FAERS Safety Report 5962888-2 (Version None)
Quarter: 2008Q4

REPORT INFORMATION
  Report Type: 
  Country: None (occurrence: None)
  Receive Date: 20081124
  Receipt Date: 20081117
  Transmission Date: 20090506
  Serious: Yes (Other)
  Sender: FDA-Public Use
  Company Number: JP-BAYER-200812620BYL

PATIENT
  Age: 40 Year
  Sex: Female

DRUGS (5)
  1. ADALAT CC [Suspect]
     Indication: HYPERTENSION
     Route: 048
  2. METHYLDOPA [Concomitant]
     Route: 048
  3. HYDRALAZINE HYDROCHLORIDE [Concomitant]
     Route: 048
  4. NICARDIPINE HYDROCHLORIDE [Concomitant]
     Route: 041
  5. RITODRINE HYDROCHLORIDE [Concomitant]
     Route: 065

REACTIONS (3)
  - ASCITES [None]
  - FOETAL DISORDER [None]
  - PLEURAL EFFUSION [None]
